FAERS Safety Report 23477446 (Version 1)
Quarter: 2024Q1

REPORT INFORMATION
  Report Type: Spontaneous
  Country: GB (occurrence: GB)
  Receive Date: 20240204
  Receipt Date: 20240204
  Transmission Date: 20240410
  Serious: No
  Sender: FDA-Public Use
  Company Number: GB-IPSEN Group, Research and Development-2023-16199

PATIENT
  Age: 76 Year
  Sex: Male
  Weight: 80 kg

DRUGS (5)
  1. CABOMETYX [Suspect]
     Active Substance: CABOZANTINIB S-MALATE
     Indication: Solitary fibrous tumour
     Dosage: 60 MG, QD
     Route: 065
     Dates: start: 20230706
  2. ATORVASTATIN [Concomitant]
     Active Substance: ATORVASTATIN
     Indication: Blood cholesterol increased
     Dosage: 20 MG NOCTE
     Route: 048
  3. BISOPROLOL [Concomitant]
     Active Substance: BISOPROLOL\BISOPROLOL FUMARATE
     Indication: Hypertension
     Dosage: 2.5 MG AM, 5 MG NOCTE
     Route: 048
     Dates: start: 2022
  4. RAMIPRIL [Concomitant]
     Active Substance: RAMIPRIL
     Indication: Hypertension
     Dosage: 10MG OD
     Route: 048
     Dates: start: 2022
  5. BENDROFLUMETHIAZIDE [Concomitant]
     Active Substance: BENDROFLUMETHIAZIDE
     Indication: Hypertension
     Dosage: 2.5 MG OD
     Route: 048
     Dates: start: 2023, end: 20230907

REACTIONS (5)
  - Disease progression [Unknown]
  - Palmar-plantar erythrodysaesthesia syndrome [Unknown]
  - Palmar-plantar erythrodysaesthesia syndrome [Recovering/Resolving]
  - Palmar-plantar erythrodysaesthesia syndrome [Recovering/Resolving]
  - Off label use [Unknown]

NARRATIVE: CASE EVENT DATE: 20230727
